FAERS Safety Report 6430277-2 (Version None)
Quarter: 2009Q4

REPORT INFORMATION
  Report Type: 
  Country: None (occurrence: None)
  Receive Date: 20091106
  Receipt Date: 20091029
  Transmission Date: 20100525
  Serious: Yes (Hospitalization, Other)
  Sender: FDA-Public Use
  Company Number: US-ABBOTT-09P-163-0605669-00

PATIENT
  Sex: Female
  Weight: 39.952 kg

DRUGS (2)
  1. HUMIRA [Suspect]
     Indication: CROHN'S DISEASE
     Route: 058
     Dates: start: 20081001, end: 20090201
  2. HUMIRA [Suspect]
     Route: 058
     Dates: start: 20090201, end: 20090701

REACTIONS (10)
  - ABDOMINAL PAIN [None]
  - ANAEMIA [None]
  - CROHN'S DISEASE [None]
  - FISTULA [None]
  - FISTULA DISCHARGE [None]
  - HEART RATE INCREASED [None]
  - HYPOPHAGIA [None]
  - INJECTION SITE PAIN [None]
  - PYREXIA [None]
  - WEIGHT DECREASED [None]
